FAERS Safety Report 8835439 (Version 1)
Quarter: 2012Q4

REPORT INFORMATION
  Report Type: 
  Country: BR (occurrence: BR)
  Receive Date: 20121011
  Receipt Date: 20121011
  Transmission Date: 20130627
  Serious: Yes (Other)
  Sender: FDA-Public Use
  Company Number: PHHY2012BR089612

PATIENT
  Sex: Female

DRUGS (2)
  1. FORASEQ [Suspect]
     Indication: ASTHMA
     Dosage: 1 DF, BID
     Route: 048
  2. FORASEQ [Suspect]
     Dosage: 1 DF, every 2 days

REACTIONS (2)
  - Deafness [Not Recovered/Not Resolved]
  - Incorrect dose administered [Unknown]
